FAERS Safety Report 7921008-5 (Version None)
Quarter: 2011Q4

REPORT INFORMATION
  Report Type: 
  Country: None (occurrence: None)
  Receive Date: 20111117
  Receipt Date: 20111105
  Transmission Date: 20120403
  Serious: Yes (Hospitalization, Other)
  Sender: FDA-Public Use
  Company Number: US-BAYER-201038841NA

PATIENT
  Age: 25 Year
  Sex: Female
  Weight: 87 kg

DRUGS (8)
  1. PHENERGAN [Concomitant]
     Indication: NAUSEA
     Route: 048
  2. CALCIUM [Concomitant]
     Dosage: 1500 MG, UNK
     Route: 048
     Dates: start: 20090616
  3. VICODIN [Concomitant]
     Indication: PAIN MANAGEMENT
     Route: 048
  4. ZOLPIDEM TARTRATE [Concomitant]
     Indication: INSOMNIA
     Dosage: 10 MG, HS
     Route: 048
     Dates: start: 20090616
  5. YAZ [Suspect]
     Indication: PRODUCT USED FOR UNKNOWN INDICATION
     Dosage: UNK UNK, QD
     Route: 048
     Dates: start: 20020101, end: 20081201
  6. YASMIN [Suspect]
     Indication: PRODUCT USED FOR UNKNOWN INDICATION
     Dosage: UNK UNK, QD
     Route: 048
     Dates: start: 20020101, end: 20081201
  7. MULTI-VITAMINS [Concomitant]
     Dosage: UNK
     Route: 048
     Dates: start: 20090616
  8. LOVENOX [Concomitant]
     Indication: ANTICOAGULANT THERAPY
     Dosage: 100 MG/ML, BID
     Route: 058
     Dates: start: 20090616

REACTIONS (5)
  - THROMBOSIS [None]
  - GALLBLADDER DISORDER [None]
  - CHOLECYSTITIS CHRONIC [None]
  - CHOLELITHIASIS [None]
  - DEEP VEIN THROMBOSIS [None]
